FAERS Safety Report 16462774 (Version 1)
Quarter: 2019Q2

REPORT INFORMATION
  Report Type: Spontaneous
  Country: US (occurrence: US)
  Receive Date: 20190512
  Receipt Date: 20190512
  Transmission Date: 20190711
  Serious: No
  Sender: FDA-Public Use
  Company Number: None

PATIENT
  Age: 64 Year
  Sex: Male

DRUGS (5)
  1. PRILOSEC [Suspect]
     Active Substance: OMEPRAZOLE MAGNESIUM
  2. ZYTIGA [Suspect]
     Active Substance: ABIRATERONE ACETATE
  3. PREDNISONE 5MG TAB [Suspect]
     Active Substance: PREDNISONE
  4. LOSARTAN. [Suspect]
     Active Substance: LOSARTAN
  5. HCTZ [Suspect]
     Active Substance: HYDROCHLOROTHIAZIDE

REACTIONS (1)
  - Muscle spasms [None]

NARRATIVE: CASE EVENT DATE: 20190512
